FAERS Safety Report 10218855 (Version 1)
Quarter: 2014Q2

REPORT INFORMATION
  Report Type: Spontaneous
  Country: GR (occurrence: None)
  Receive Date: 20140603
  Receipt Date: 20140603
  Transmission Date: 20141212
  Serious: Yes (Life-Threatening, Hospitalization)
  Sender: FDA-Public Use
  Company Number: 7295029

PATIENT
  Age: 56 Year
  Sex: Female

DRUGS (1)
  1. LEVOTHYROXINE (LEVOTHYROXINE) (TABLET) (LEVOTHYROXINE SODIUM) [Suspect]
     Indication: HYPOTHYROIDISM
     Dosage: THERAPY DURATION - FROM 25 YEARS BEFORE AUTHOR^S REPORTED TO CONTINUING IN VARIABLE DOSAGE SCHEMES THROUGH TIME
     Route: 048

REACTIONS (2)
  - Hypothyroidism [None]
  - Disease recurrence [None]
